FAERS Safety Report 18101316 (Version 1)
Quarter: 2020Q3

REPORT INFORMATION
  Report Type: Spontaneous
  Country: DE (occurrence: DE)
  Receive Date: 20200801
  Receipt Date: 20200801
  Transmission Date: 20201103
  Serious: Yes (Death, Life-Threatening, Hospitalization, Other)
  Sender: FDA-Public Use
  Company Number: DE-ACCORD-193647

PATIENT
  Age: 79 Year
  Sex: Female
  Weight: 60 kg

DRUGS (4)
  1. DEXAMETHASONE. [Concomitant]
     Active Substance: DEXAMETHASONE
     Indication: RADIOTHERAPY
     Dates: start: 202006
  2. FLUOROURACIL. [Suspect]
     Active Substance: FLUOROURACIL
     Indication: ANAL CANCER
     Dosage: 1G / M2 CORRESPONDING TO 1786.5 MG ABSOLUTE VIA I.?V.? PUMP
     Route: 042
     Dates: start: 20200608, end: 20200717
  3. MITOMYCIN. [Suspect]
     Active Substance: MITOMYCIN
     Indication: RADIOTHERAPY
     Dosage: 10MG / M2 CORRESPONDING TO 17.86 OVER 15 MIN. (EXTERNAL ONCOLOGICAL PRACTICE)
     Route: 042
     Dates: start: 20200608, end: 20200717
  4. CARBIMAZOLE [Concomitant]
     Active Substance: CARBIMAZOLE
     Indication: HYPERTHYROIDISM
     Dates: start: 202002, end: 20200722

REACTIONS (3)
  - Gastrointestinal necrosis [Fatal]
  - Neutropenic sepsis [Fatal]
  - Off label use [Unknown]

NARRATIVE: CASE EVENT DATE: 20200718
